FAERS Safety Report 4658783-1 (Version None)
Quarter: 2005Q2

REPORT INFORMATION
  Report Type: 
  Country: None (occurrence: None)
  Receive Date: 20050509
  Receipt Date: 20050427
  Transmission Date: 20051028
  Serious: Yes (Other)
  Sender: FDA-Public Use
  Company Number: 2005067544

PATIENT
  Age: 61 Year
  Sex: Male

DRUGS (1)
  1. LATANOPROST [Suspect]
     Indication: OCULAR HYPERTENSION

REACTIONS (2)
  - EYELID PTOSIS [None]
  - TRICHOMEGALY [None]
